FAERS Safety Report 17316413 (Version 3)
Quarter: 2021Q4

REPORT INFORMATION
  Report Type: Spontaneous
  Country: CA (occurrence: CA)
  Receive Date: 20200124
  Receipt Date: 20211209
  Transmission Date: 20220303
  Serious: Yes (Other)
  Sender: FDA-Public Use
  Company Number: CA-UNITED THERAPEUTICS-UNT-2020-000365

PATIENT
  Age: 59 Year
  Sex: Female

DRUGS (3)
  1. REMODULIN [Suspect]
     Active Substance: TREPROSTINIL
     Indication: Pulmonary arterial hypertension
     Dosage: UNK, CONTINUING
     Route: 058
     Dates: start: 20131017
  2. REMODULIN [Suspect]
     Active Substance: TREPROSTINIL
     Dosage: 0.085 ?G/KG, CONTINUING
     Route: 058
  3. REMODULIN [Suspect]
     Active Substance: TREPROSTINIL
     Dosage: 0.0997 ?G/KG, CONTINUING
     Route: 058

REACTIONS (8)
  - Breast cancer [Not Recovered/Not Resolved]
  - Weight decreased [Not Recovered/Not Resolved]
  - Infusion site pain [Unknown]
  - Post procedural contusion [Not Recovered/Not Resolved]
  - Procedural pain [Not Recovered/Not Resolved]
  - Nasopharyngitis [Unknown]
  - Illness [Unknown]
  - Wrong dose [Unknown]

NARRATIVE: CASE EVENT DATE: 20200113
